FAERS Safety Report 14989384 (Version 2)
Quarter: 2018Q3

REPORT INFORMATION
  Report Type: Spontaneous
  Country: US (occurrence: US)
  Receive Date: 20180608
  Receipt Date: 20180723
  Transmission Date: 20181010
  Serious: Yes (Death, Other)
  Sender: FDA-Public Use
  Company Number: US-ENDO PHARMACEUTICALS INC-2018-039654

PATIENT
  Age: 41 Year
  Sex: Male
  Weight: 172.34 kg

DRUGS (2)
  1. AVEED [Suspect]
     Active Substance: TESTOSTERONE UNDECANOATE
     Dosage: 750 MG, EVERY EIGHT WEEKS
     Route: 030
     Dates: start: 20160907
  2. AVEED [Suspect]
     Active Substance: TESTOSTERONE UNDECANOATE
     Indication: TESTICULAR FAILURE
     Dosage: UNK MG, UNKNOWN
     Route: 030
     Dates: start: 20161010

REACTIONS (4)
  - Death [Fatal]
  - Haemoptysis [Recovered/Resolved]
  - Wrong technique in product usage process [Recovered/Resolved]
  - Cough [Recovered/Resolved]

NARRATIVE: CASE EVENT DATE: 20161010
